FAERS Safety Report 7943841-6 (Version None)
Quarter: 2011Q4

REPORT INFORMATION
  Report Type: 
  Country: None (occurrence: None)
  Receive Date: 20111128
  Receipt Date: 20111117
  Transmission Date: 20120403
  Serious: Yes (Hospitalization)
  Sender: FDA-Public Use
  Company Number: CL-ROCHE-1009849

PATIENT
  Age: 48 Year
  Sex: Female
  Weight: 55 kg

DRUGS (5)
  1. METHOTREXATE [Concomitant]
  2. PREDNISONE TAB [Concomitant]
  3. LEFLUNOMIDE [Concomitant]
  4. ACTEMRA [Suspect]
     Indication: RHEUMATOID ARTHRITIS
     Route: 042
     Dates: start: 20111027, end: 20111027
  5. LEVOTHYROXINE SODIUM [Concomitant]
     Indication: HYPOTHYROIDISM
     Route: 048

REACTIONS (4)
  - OROPHARYNGEAL PAIN [None]
  - MUSCULOSKELETAL STIFFNESS [None]
  - HERPES VIRUS INFECTION [None]
  - JOINT STIFFNESS [None]
